FAERS Safety Report 18618410 (Version 2)
Quarter: 2020Q4

REPORT INFORMATION
  Report Type: Spontaneous
  Country: US (occurrence: US)
  Receive Date: 20201215
  Receipt Date: 20201223
  Transmission Date: 20210114
  Serious: Yes (Other)
  Sender: FDA-Public Use
  Company Number: US-009507513-2012USA005609

PATIENT
  Age: 18 Year
  Sex: Female
  Weight: 92.06 kg

DRUGS (2)
  1. NEXPLANON [Suspect]
     Active Substance: ETONOGESTREL
     Indication: CONTRACEPTION
     Dosage: 1 DOSAGE FORM
     Route: 059
     Dates: start: 20201204
  2. NEXPLANON [Suspect]
     Active Substance: ETONOGESTREL
     Indication: CONTRACEPTION
     Dosage: 68 MG IMPLANT IN LEFT ARM
     Route: 059
     Dates: start: 20191010, end: 20201204

REACTIONS (6)
  - Wrong technique in device usage process [Unknown]
  - Device kink [Recovered/Resolved]
  - Infection [Recovering/Resolving]
  - Pain in extremity [Recovering/Resolving]
  - Complication of device removal [Recovered/Resolved]
  - Circumstance or information capable of leading to medication error [Unknown]

NARRATIVE: CASE EVENT DATE: 202010
